FAERS Safety Report 4386779-6 (Version None)
Quarter: 2004Q2

REPORT INFORMATION
  Report Type: 
  Country: None (occurrence: None)
  Receive Date: 20040607
  Receipt Date: 20030513
  Transmission Date: 20050107
  Serious: Yes (Other)
  Sender: FDA-Public Use
  Company Number: 337962

PATIENT
  Age: 19 Year
  Sex: Female

DRUGS (4)
  1. ACCUTANE [Suspect]
     Indication: ACNE
     Dosage: 20 MG DAILY ORAL
     Route: 048
     Dates: start: 20030118
  2. DOXYCYCLINE [Suspect]
     Indication: ACNE
     Dosage: 100 MG DAILY ORAL
     Route: 048
     Dates: start: 20020103, end: 20021218
  3. BIRTH CONTROL PILLS NOS (ORAL CONTRACEPTIVE NOS) [Concomitant]
  4. MINOCYCLINE HCL [Concomitant]

REACTIONS (2)
  - ASPARTATE AMINOTRANSFERASE INCREASED [None]
  - TRANSAMINASES INCREASED [None]
